FAERS Safety Report 22002289 (Version 1)
Quarter: 2023Q1

REPORT INFORMATION
  Report Type: Spontaneous
  Country: PT (occurrence: PT)
  Receive Date: 20230217
  Receipt Date: 20230217
  Transmission Date: 20230418
  Serious: Yes (Hospitalization, Other)
  Sender: FDA-Public Use
  Company Number: PT-AUROBINDO-AUR-APL-2023-004854

PATIENT
  Age: 73 Year
  Sex: Male

DRUGS (1)
  1. TRANEXAMIC ACID [Suspect]
     Active Substance: TRANEXAMIC ACID
     Indication: Product used for unknown indication
     Dosage: 200 MILLIGRAM, TOTAL
     Route: 037

REACTIONS (18)
  - Renal impairment [Recovered/Resolved]
  - Acid-base balance disorder mixed [Recovered/Resolved]
  - Epilepsy [Recovered/Resolved]
  - Hypoxia [Recovered/Resolved]
  - Myoclonus [Recovered/Resolved]
  - Metabolic acidosis [Recovered/Resolved]
  - Dysarthria [Recovered/Resolved]
  - Muscular weakness [Recovered/Resolved]
  - Hypertension [Recovered/Resolved]
  - Perineal pain [Recovered/Resolved]
  - Haemodynamic instability [Recovered/Resolved]
  - Leukocytosis [Recovered/Resolved]
  - Urine output decreased [Recovered/Resolved]
  - Electric shock sensation [Recovered/Resolved]
  - Pyrexia [Recovered/Resolved]
  - Accidental exposure to product [Recovered/Resolved]
  - Incorrect route of product administration [Recovered/Resolved]
  - Medication error [Unknown]
